FAERS Safety Report 25570998 (Version 3)
Quarter: 2025Q3

REPORT INFORMATION
  Report Type: Report from Study
  Country: CA (occurrence: CA)
  Receive Date: 20250717
  Receipt Date: 20250802
  Transmission Date: 20251021
  Serious: Yes (Other)
  Sender: ROCHE
  Company Number: CA-ROCHE-10000334103

PATIENT
  Age: 65 Year
  Sex: Male
  Weight: 98.6 kg

DRUGS (15)
  1. ACTEMRA [Suspect]
     Active Substance: TOCILIZUMAB
     Indication: Rheumatoid arthritis
     Dosage: DRUG DOSE FIRST ADMINISTERED IS 789 MG MILLIGRAM(S)
     Route: 042
     Dates: start: 20110106, end: 2011
  2. ACTEMRA [Suspect]
     Active Substance: TOCILIZUMAB
     Dosage: DRUG DOSE FIRST ADMINISTERED IS 380 MG MILLIGRAM(S)
     Route: 042
     Dates: start: 20110922
  3. ACTEMRA [Suspect]
     Active Substance: TOCILIZUMAB
     Dosage: DRUG DOSE FIRST ADMINISTERED IS 400 MG MILLIGRAM(S)
     Route: 042
     Dates: start: 20150105
  4. ACTEMRA [Suspect]
     Active Substance: TOCILIZUMAB
     Dosage: DRUG DOSE FIRST ADMINISTERED IS UNKNOWN ?MOREDOSAGEINFO IS NO PIRS AVAILABLE
     Route: 042
     Dates: start: 20200729
  5. ACTEMRA [Suspect]
     Active Substance: TOCILIZUMAB
     Dosage: DRUG DOSE FIRST ADMINISTERED IS 268 MG MILLIGRAM(S)
     Route: 042
     Dates: start: 202412
  6. ACTEMRA [Suspect]
     Active Substance: TOCILIZUMAB
     Route: 042
  7. CALCIUM [Concomitant]
     Active Substance: CALCIUM
  8. FOLIC ACID [Concomitant]
     Active Substance: FOLIC ACID
  9. GLUCOSAMINE [Concomitant]
     Active Substance: GLUCOSAMINE
  10. METHOTREXATE [Concomitant]
     Active Substance: METHOTREXATE
  11. VITAMINS [Concomitant]
     Active Substance: VITAMINS
  12. NAPROXEN [Concomitant]
     Active Substance: NAPROXEN
  13. PREDNISONE [Concomitant]
     Active Substance: PREDNISONE
  14. TYLENOL [Concomitant]
     Active Substance: ACETAMINOPHEN
  15. VITAMIN D [Concomitant]
     Active Substance: VITAMIN D NOS

REACTIONS (7)
  - Hypotension [Unknown]
  - Heart rate increased [Unknown]
  - Chills [Recovered/Resolved]
  - Decreased appetite [Not Recovered/Not Resolved]
  - Malaise [Unknown]
  - Heart rate irregular [Unknown]
  - Muscular weakness [Unknown]

NARRATIVE: CASE EVENT DATE: 20250101
